FAERS Safety Report 8200487 (Version 5)
Quarter: 2013Q1

REPORT INFORMATION
  Report Type: Spontaneous
  Country: US (occurrence: US)
  Receive Date: 20111026
  Receipt Date: 20130123
  Transmission Date: 20140127
  Serious: Yes (Hospitalization, Other)
  Sender: FDA-Public Use
  Company Number: US-ELI_LILLY_AND_COMPANY-US201110004408

PATIENT
  Age: 84 Year
  Sex: Female

DRUGS (12)
  1. FORTEO [Suspect]
     Indication: OSTEOPOROSIS
     Dosage: 20 UG, QD
     Route: 058
     Dates: start: 20110415
  2. FORTEO [Suspect]
     Dosage: 20 UG, QD
     Route: 058
  3. FORTEO [Suspect]
     Dosage: 20 UG, QD
     Route: 058
  4. FORTEO [Suspect]
     Dosage: 20 UG, QD
     Route: 058
  5. MECLIZINE [Concomitant]
     Dosage: 25 MG, UNK
  6. OMEPRAZOL [Concomitant]
     Dosage: 20 MG, UNK
  7. SIMVASTATIN [Concomitant]
  8. DICLOFENAC [Concomitant]
  9. FEXOFENADINE [Concomitant]
  10. CENTRUM SILVER [Concomitant]
  11. OSCAL [Concomitant]
  12. ADVAIR [Concomitant]

REACTIONS (9)
  - Leukaemia [Unknown]
  - Spinal fracture [Recovering/Resolving]
  - Intestinal polyp [Unknown]
  - Gastrooesophageal reflux disease [Unknown]
  - Fatigue [Unknown]
  - Posture abnormal [Unknown]
  - Pain [Unknown]
  - Malaise [Unknown]
  - Nasopharyngitis [Unknown]
